FAERS Safety Report 10239732 (Version 1)
Quarter: 2014Q2

REPORT INFORMATION
  Report Type: Report from Study
  Country: US (occurrence: US)
  Receive Date: 20140616
  Receipt Date: 20140616
  Transmission Date: 20141212
  Serious: Yes (Hospitalization)
  Sender: FDA-Public Use
  Company Number: US-TAKEDA-2014MPI001648

PATIENT
  Age: 61 Year
  Sex: Male
  Weight: 71.8 kg

DRUGS (11)
  1. VELCADE [Suspect]
     Indication: PLASMA CELL MYELOMA
     Route: 042
  2. DEXAMETHASONE [Suspect]
     Indication: PLASMA CELL MYELOMA
     Route: 048
  3. LENALIDOMIDE [Suspect]
     Indication: PLASMA CELL MYELOMA
     Dosage: 10 MG, QD
     Route: 048
     Dates: start: 20130812
  4. ACYCLOVIR                          /00587301/ [Concomitant]
  5. XANAX [Concomitant]
  6. AMLODIPINE [Concomitant]
  7. SYMBICORT [Concomitant]
  8. FOLIC ACID [Concomitant]
  9. PROTONIX [Concomitant]
  10. POTASSIUM CHLORIDE [Concomitant]
  11. SPIRIVA [Concomitant]

REACTIONS (1)
  - Urinary tract infection bacterial [Unknown]
